FAERS Safety Report 9507586 (Version 1)
Quarter: 2013Q1

REPORT INFORMATION
  Report Type: Spontaneous
  Country: US (occurrence: None)
  Receive Date: 20130305
  Receipt Date: 20130305
  Transmission Date: 20140127
  Serious: Yes (Hospitalization, Other)
  Sender: FDA-Public Use
  Company Number: 163-218/80-12032517

PATIENT
  Age: 58 Year
  Sex: Male
  Weight: 113.4 kg

DRUGS (7)
  1. REVLIMID [Suspect]
     Indication: PLASMA CELL MYELOMA
     Dosage: 25 MG, DAY 1-14 Q 21 D, PO
     Route: 048
     Dates: start: 20120213, end: 20120226
  2. VELCADE [Suspect]
     Indication: PRODUCT USED FOR UNKNOWN INDICATION
     Dosage: 1.3 MG/M2, DAY 1, 4, 8, 11 Q21 DAYS, IV
     Route: 042
     Dates: start: 20120213
  3. DEXAMETHASONE [Suspect]
     Indication: PRODUCT USED FOR UNKNOWN INDICATION
     Dosage: 20 MG, D 1, 2, 4, 5, 8, 9, 11, 12 CYCLE
  4. DIOVAN HCT (CO-DIOVAN) [Concomitant]
  5. ATENOLOL (ATENOLOL) [Concomitant]
  6. VERAPAMIL(VERAPAMIL) [Concomitant]
  7. PRAVASTATIN (PRAVASTATIN) [Concomitant]

REACTIONS (3)
  - Thrombocytopenia [None]
  - Malaise [None]
  - Fatigue [None]
